FAERS Safety Report 7640638-1 (Version None)
Quarter: 2011Q3

REPORT INFORMATION
  Report Type: 
  Country: None (occurrence: None)
  Receive Date: 20110721
  Receipt Date: 20110717
  Transmission Date: 20111222
  Serious: Yes (Death, Hospitalization, Other)
  Sender: FDA-Public Use
  Company Number: 201110889

PATIENT
  Sex: Male

DRUGS (1)
  1. LIORESAL [Suspect]
     Indication: MUSCLE SPASTICITY
     Dosage: DAILY, INTRATHECAL
     Route: 039

REACTIONS (4)
  - DEVICE COMPUTER ISSUE [None]
  - SEPSIS [None]
  - INCORRECT DOSE ADMINISTERED [None]
  - RESPIRATORY DEPRESSION [None]
